FAERS Safety Report 18742525 (Version 1)
Quarter: 2021Q1

REPORT INFORMATION
  Report Type: Spontaneous
  Country: US (occurrence: US)
  Receive Date: 20210114
  Receipt Date: 20210114
  Transmission Date: 20210419
  Serious: No
  Sender: FDA-Public Use
  Company Number: US-MILLICENT HOLDINGS LTD.-MILL20210004

PATIENT
  Age: 68 Year
  Sex: Female

DRUGS (2)
  1. INTRAROSA [Suspect]
     Active Substance: PRASTERONE
     Indication: MENOPAUSAL SYMPTOMS
  2. INTRAROSA [Suspect]
     Active Substance: PRASTERONE
     Indication: DYSPAREUNIA
     Dosage: UNKNOWN
     Route: 067
     Dates: start: 20201130

REACTIONS (2)
  - Poor quality product administered [Unknown]
  - Product packaging difficult to open [Unknown]

NARRATIVE: CASE EVENT DATE: 20201130
